FAERS Safety Report 6610148-9 (Version None)
Quarter: 2010Q1

REPORT INFORMATION
  Report Type: 
  Country: None (occurrence: None)
  Receive Date: 20100216
  Receipt Date: 20090322
  Transmission Date: 20100710
  Serious: Yes (Death)
  Sender: FDA-Public Use
  Company Number: MC200900113

PATIENT
  Age: 78 Year
  Sex: Male

DRUGS (1)
  1. ANGIOMAX [Suspect]
     Indication: CORONARY ARTERY BYPASS
     Dosage: INTRAVENOUS
     Route: 042

REACTIONS (2)
  - COAGULATION TIME ABNORMAL [None]
  - HAEMORRHAGE [None]
